FAERS Safety Report 8952543 (Version 3)
Quarter: 2013Q1

REPORT INFORMATION
  Report Type: Report from Study
  Country: US (occurrence: US)
  Receive Date: 20121205
  Receipt Date: 20130115
  Transmission Date: 20140127
  Serious: Yes (Death, Life-Threatening, Hospitalization, Other)
  Sender: FDA-Public Use
  Company Number: US-GENZYME-MOZO-1000789

PATIENT
  Age: 50 Year
  Sex: Male
  Weight: 54.88 kg

DRUGS (8)
  1. MOZOBIL [Suspect]
     Indication: HAEMATOPOIETIC STEM CELL MOBILISATION
     Dosage: UNK
     Route: 058
     Dates: start: 20110612, end: 20110612
  2. MOZOBIL [Suspect]
     Indication: B-CELL LYMPHOMA
  3. CORTICOSTEROID NOS [Suspect]
     Indication: SEPTIC SHOCK
     Dosage: UNK
     Route: 065
     Dates: start: 20120210
  4. RITUXIMAB [Suspect]
     Indication: HAEMATOPOIETIC STEM CELL MOBILISATION
     Dosage: UNK
     Route: 065
     Dates: start: 201106
  5. IFOSFAMIDE [Suspect]
     Indication: HAEMATOPOIETIC STEM CELL MOBILISATION
     Dosage: UNK
     Route: 065
     Dates: start: 201106
  6. CARBOPLATIN [Suspect]
     Indication: HAEMATOPOIETIC STEM CELL MOBILISATION
     Dosage: UNK
     Route: 065
     Dates: start: 201106
  7. ETOPOSIDE [Suspect]
     Indication: HAEMATOPOIETIC STEM CELL MOBILISATION
     Dosage: UNK
     Route: 065
     Dates: start: 201106
  8. G-CSF [Suspect]
     Indication: HAEMATOPOIETIC STEM CELL MOBILISATION
     Dosage: UNK
     Route: 065
     Dates: start: 201106

REACTIONS (8)
  - Cardiopulmonary failure [Fatal]
  - Septic shock [Fatal]
  - Diffuse large B-cell lymphoma [Fatal]
  - Pneumonia staphylococcal [Fatal]
  - Lactic acidosis [Fatal]
  - Hyperglycaemia [Fatal]
  - Anaemia [Recovered/Resolved]
  - Abdominal pain [Fatal]
